FAERS Safety Report 18605712 (Version 1)
Quarter: 2020Q4

REPORT INFORMATION
  Report Type: Spontaneous
  Country: DE (occurrence: DE)
  Receive Date: 20201211
  Receipt Date: 20201211
  Transmission Date: 20210114
  Serious: Yes (Other)
  Sender: FDA-Public Use
  Company Number: DE-ADVANZ PHARMA-202011010719

PATIENT

DRUGS (1)
  1. HYDROXYCHLOROQUINE [Suspect]
     Active Substance: HYDROXYCHLOROQUINE
     Indication: PRODUCT USED FOR UNKNOWN INDICATION
     Dosage: UNKNOWN,  QUENSYL (HYDROXYCHLOROQUINE SULFATE) FILM-COATED TABLET
     Route: 065

REACTIONS (1)
  - Myocardial infarction [Unknown]
